FAERS Safety Report 14158593 (Version 2)
Quarter: 2017Q4

REPORT INFORMATION
  Report Type: Spontaneous
  Country: US (occurrence: US)
  Receive Date: 20171103
  Receipt Date: 20171109
  Transmission Date: 20180321
  Serious: Yes (Death, Life-Threatening)
  Sender: FDA-Public Use
  Company Number: US-PFIZER INC-2017462030

PATIENT
  Age: 15 Year
  Sex: Female

DRUGS (12)
  1. CYCLOPHOSPHAMIDE. [Suspect]
     Active Substance: CYCLOPHOSPHAMIDE
     Indication: ALVEOLAR RHABDOMYOSARCOMA
     Dosage: UNK, CYCLIC (CUMULATIVE DOSE 3.6 G/M2)
  2. VINORELBINE TARTRATE. [Suspect]
     Active Substance: VINORELBINE TARTRATE
     Indication: RHABDOMYOSARCOMA
     Dosage: UNK , CYCLIC (CUMULATIVE DOSE 3.6 G/M2)
  3. CYCLOPHOSPHAMIDE. [Suspect]
     Active Substance: CYCLOPHOSPHAMIDE
     Indication: RHABDOMYOSARCOMA
     Dosage: UNK, CYCLIC (CUMULATIVE DOSE 9.6 G/M2)
  4. CYCLOPHOSPHAMIDE. [Suspect]
     Active Substance: CYCLOPHOSPHAMIDE
     Dosage: UNK, CYCLIC 5 ADDITIONAL CYCLES OF VINORELBINE AND CYCLOPHOSPHAMIDE (CUMULATIVE DOSE 6 G/M2)
  5. DOXORUBICIN HCL [Suspect]
     Active Substance: DOXORUBICIN HYDROCHLORIDE
     Indication: ALVEOLAR RHABDOMYOSARCOMA
     Dosage: UNK, CYCLIC (CUMULATIVE DOSE 375MG/M2)
  6. DACTINOMYCIN [Concomitant]
     Active Substance: DACTINOMYCIN
     Indication: ALVEOLAR RHABDOMYOSARCOMA
     Dosage: UNK , CYCLIC
  7. ETOPOSIDE. [Suspect]
     Active Substance: ETOPOSIDE
     Indication: ALVEOLAR RHABDOMYOSARCOMA
     Dosage: UNK , CYCLIC (CUMULATIVE DOSE 2.5 G/M2)
  8. IRINOTECAN [Concomitant]
     Active Substance: IRINOTECAN
     Indication: ALVEOLAR RHABDOMYOSARCOMA
     Dosage: UNK, CYCLIC
  9. CIXUTUMUMAB [Concomitant]
     Active Substance: CIXUTUMUMAB
     Indication: ALVEOLAR RHABDOMYOSARCOMA
     Dosage: UNK, CYCLIC
  10. IFOSFAMIDE. [Concomitant]
     Active Substance: IFOSFAMIDE
     Indication: ALVEOLAR RHABDOMYOSARCOMA
     Dosage: UNK, CYCLIC (CUMULATIVE DOSE 45 G/M2)
  11. VINCRISTINE [Concomitant]
     Active Substance: VINCRISTINE
     Indication: ALVEOLAR RHABDOMYOSARCOMA
     Dosage: UNK, CYCLIC
  12. VINORELBINE TARTRATE. [Suspect]
     Active Substance: VINORELBINE TARTRATE
     Dosage: UNK, CYCLIC 5 ADDITIONAL CYCLES OF VINORELBINE AND CYCLOPHOSPHAMIDE (CUMULATIVE DOSE 6 G/M2)

REACTIONS (2)
  - Second primary malignancy [Fatal]
  - Acute myeloid leukaemia [Fatal]
